FAERS Safety Report 4592018-3 (Version None)
Quarter: 2005Q1

REPORT INFORMATION
  Report Type: 
  Country: None (occurrence: None)
  Receive Date: 20050125
  Receipt Date: 20041007
  Transmission Date: 20050727
  Serious: No
  Sender: FDA-Public Use
  Company Number: USA040773209

PATIENT
  Age: 77 Year
  Sex: Female
  Weight: 62 kg

DRUGS (2)
  1. FORTEO [Suspect]
     Indication: BONE DISORDER
     Dosage: 20 UG/1DAY
     Dates: start: 20040701
  2. CITRACAL (CALCIUM CITRATE) [Concomitant]

REACTIONS (3)
  - ABDOMINAL DISTENSION [None]
  - INJECTION SITE HAEMORRHAGE [None]
  - WEIGHT INCREASED [None]
